FAERS Safety Report 5672844-X (Version None)
Quarter: 2008Q1

REPORT INFORMATION
  Report Type: 
  Country: None (occurrence: None)
  Receive Date: 20080319
  Receipt Date: 20080305
  Transmission Date: 20080703
  Serious: Yes (Congenital Anomaly)
  Sender: FDA-Public Use
  Company Number: A0677479A

PATIENT
  Sex: Female
  Weight: 3.6 kg

DRUGS (4)
  1. PAXIL [Suspect]
     Indication: ANXIETY
     Dosage: 40MG PER DAY
     Dates: start: 20000301, end: 20040501
  2. VITAMIN TAB [Concomitant]
     Indication: PREGNANCY
     Dates: start: 20030901, end: 20040801
  3. FLUORIDE [Concomitant]
     Dates: start: 20050801
  4. LAXATIVE [Concomitant]
     Indication: CONSTIPATION
     Dosage: 17MG PER DAY
     Dates: start: 20060801

REACTIONS (3)
  - CARDIAC MURMUR [None]
  - DRUG EXPOSURE DURING PREGNANCY [None]
  - VENTRICULAR SEPTAL DEFECT [None]
